FAERS Safety Report 4349016-4 (Version None)
Quarter: 2004Q2

REPORT INFORMATION
  Report Type: 
  Country: None (occurrence: None)
  Receive Date: 20040427
  Receipt Date: 20040427
  Transmission Date: 20050107
  Serious: Yes (Life-Threatening)
  Sender: FDA-Public Use
  Company Number: None

PATIENT
  Age: 13 Year
  Sex: Male

DRUGS (2)
  1. DEPAKOTE [Suspect]
     Indication: CONVULSION
     Dosage: 250 MG 4 TIMES , 500 MG ONCE
     Dates: start: 19950201, end: 19960101
  2. DEPAKOTE [Suspect]
     Indication: CONVULSION
     Dosage: 250 MG 4 TIMES , 500 MG ONCE
     Dates: start: 19950201, end: 19960701

REACTIONS (2)
  - ABNORMAL BEHAVIOUR [None]
  - AGGRESSION [None]
